FAERS Safety Report 10163644 (Version 1)
Quarter: 2014Q2

REPORT INFORMATION
  Report Type: Report from Study
  Country: DE (occurrence: NL)
  Receive Date: 20140509
  Receipt Date: 20140509
  Transmission Date: 20141212
  Serious: Yes (Hospitalization, Other)
  Sender: FDA-Public Use
  Company Number: DE-ACTELION-A-US2009-98258

PATIENT
  Age: 59 Year
  Sex: Male

DRUGS (19)
  1. VENTAVIS [Suspect]
     Indication: PULMONARY ARTERIAL HYPERTENSION
     Dosage: 5 MCG, 6 AMPOULES PER DAY
     Route: 055
     Dates: start: 20090519
  2. VENTAVIS [Suspect]
     Dosage: 5 MCG, AMPOULES PER DAY
     Route: 055
     Dates: start: 2010
  3. VENTAVIS [Suspect]
     Dosage: 8 TO 9 AMPOULES PER DAY;
     Route: 055
     Dates: start: 2010
  4. VENTAVIS [Suspect]
     Dosage: 9 AMPOULES PER DAY
     Route: 055
     Dates: start: 2010
  5. OXYGEN [Concomitant]
  6. FUROSEMIDE [Concomitant]
  7. ZELITREX [Concomitant]
  8. TRACLEER [Concomitant]
  9. COTRIMOXAZOL [Concomitant]
  10. FLUCONAZOLE [Concomitant]
  11. PREDNISONE [Concomitant]
  12. SPIRONOLACTONE [Concomitant]
  13. OMEPRAZOL [Concomitant]
  14. CHLORTALIDONE [Concomitant]
  15. REVATIO [Concomitant]
  16. ACENOCOUMAROL [Concomitant]
  17. SERETIDE [Concomitant]
  18. INSULATARD [Concomitant]
  19. NOVORAPID [Concomitant]

REACTIONS (9)
  - Intestinal haemorrhage [Recovered/Resolved]
  - Labelled drug-drug interaction medication error [Recovered/Resolved]
  - Haemorrhoids [Unknown]
  - Circulatory collapse [Unknown]
  - Dyspnoea [Unknown]
  - Fluid retention [Recovering/Resolving]
  - General physical health deterioration [Recovering/Resolving]
  - Wrong technique in drug usage process [Unknown]
  - Arrhythmia [Recovered/Resolved]
